FAERS Safety Report 12245608 (Version 1)
Quarter: 2016Q2

REPORT INFORMATION
  Report Type: Spontaneous
  Country: CA (occurrence: None)
  Receive Date: 20160406
  Receipt Date: 20160406
  Transmission Date: 20160815
  Serious: No
  Sender: FDA-Public Use
  Company Number: None

PATIENT
  Age: 51 Year
  Sex: Female
  Weight: 53.52 kg

DRUGS (4)
  1. AMERGE [Concomitant]
     Active Substance: NARATRIPTAN HYDROCHLORIDE
  2. CYMBALTA [Suspect]
     Active Substance: DULOXETINE HYDROCHLORIDE
     Indication: NEURALGIA
     Dosage: 28 CAPSULE(S) ONCE A DAY TAKEN BY MOUTH
     Route: 048
     Dates: start: 20160301, end: 20160301
  3. ADVIL [Concomitant]
     Active Substance: IBUPROFEN
  4. OMEGA [Concomitant]
     Active Substance: CONVALLARIA MAJALIS\CRATAEGUS LAEVIGATA LEAF\PROXYPHYLLINE

REACTIONS (8)
  - Vomiting [None]
  - Anxiety [None]
  - Tremor [None]
  - Migraine [None]
  - Pain in extremity [None]
  - Communication disorder [None]
  - Burning sensation [None]
  - Nausea [None]

NARRATIVE: CASE EVENT DATE: 20160301
